FAERS Safety Report 21807073 (Version 2)
Quarter: 2023Q1

REPORT INFORMATION
  Report Type: Spontaneous
  Country: PT (occurrence: PT)
  Receive Date: 20230102
  Receipt Date: 20230207
  Transmission Date: 20230418
  Serious: No
  Sender: FDA-Public Use
  Company Number: None

PATIENT
  Sex: Female

DRUGS (3)
  1. DEXAMETHASONE [Suspect]
     Active Substance: DEXAMETHASONE
     Indication: Maternal therapy to enhance foetal lung maturity
     Dosage: COMPLETED A COURSE
     Route: 065
  2. ATOSIBAN [Suspect]
     Active Substance: ATOSIBAN
     Indication: Tocolysis
     Dosage: COMPLETED TWO COURSE OF ATOSIBAN
     Route: 065
  3. OXYGEN [Suspect]
     Active Substance: OXYGEN
     Indication: Respiratory failure
     Dosage: UP TO 8 L/MIN
     Route: 065

REACTIONS (1)
  - Maternal exposure during pregnancy [Unknown]
